FAERS Safety Report 7959779 (Version 4)
Quarter: 2012Q4

REPORT INFORMATION
  Report Type: Report from Study
  Country: AT (occurrence: AT)
  Receive Date: 20110525
  Receipt Date: 20121115
  Transmission Date: 20130627
  Serious: Yes (Other)
  Sender: FDA-Public Use
  Company Number: AT-CELGENEUS-009-21880-11051055

PATIENT
  Age: 52 Year
  Sex: Male
  Weight: 82 kg

DRUGS (12)
  1. REVLIMID [Suspect]
     Indication: PERIPHERAL T-CELL LYMPHOMA UNSPECIFIED
     Dosage: 10 Milligram
     Route: 048
     Dates: start: 20110406, end: 20110426
  2. REVLIMID [Suspect]
     Dosage: 10 Milligram
     Route: 048
     Dates: start: 20110511
  3. VORINOSTAT [Suspect]
     Indication: PERIPHERAL T-CELL LYMPHOMA UNSPECIFIED
     Dosage: 400 Milligram
     Route: 048
     Dates: start: 20110406, end: 20110426
  4. VORINOSTAT [Suspect]
     Dosage: 100 Milligram
     Route: 048
     Dates: start: 20110511
  5. DEXAMETHASONE [Suspect]
     Indication: PERIPHERAL T-CELL LYMPHOMA UNSPECIFIED
     Route: 048
     Dates: start: 20110406, end: 20110420
  6. DEXAMETHASONE [Suspect]
     Dosage: 1.1429 Milligram
     Route: 048
     Dates: start: 20110511
  7. ENOXAPARIN [Concomitant]
     Indication: DRUG USE FOR UNKNOWN INDICATION
     Dosage: 40 Milligram
     Route: 065
     Dates: start: 20110111, end: 20110505
  8. ENOXAPARIN [Concomitant]
     Indication: RENAL INFARCTION
     Dosage: 80 Milligram
     Route: 065
     Dates: start: 20110506
  9. FAMOTIDINE [Concomitant]
     Indication: DRUG USE FOR UNKNOWN INDICATION
     Dosage: 40 Milligram
     Route: 065
     Dates: start: 20110111
  10. LIDAPRIM [Concomitant]
     Indication: DRUG USE FOR UNKNOWN INDICATION
     Route: 065
     Dates: start: 20110111
  11. VALACICLOVIR [Concomitant]
     Indication: DRUG USE FOR UNKNOWN INDICATION
     Dosage: 500 Milligram
     Route: 065
     Dates: start: 20110111
  12. BACTRIM [Concomitant]
     Indication: DRUG USE FOR UNKNOWN INDICATION
     Dosage: 1 Dosage forms
     Route: 065

REACTIONS (1)
  - Renal infarct [Recovered/Resolved with Sequelae]
